FAERS Safety Report 19441615 (Version 1)
Quarter: 2021Q2

REPORT INFORMATION
  Report Type: Spontaneous
  Country: AT (occurrence: AT)
  Receive Date: 20210621
  Receipt Date: 20210621
  Transmission Date: 20210717
  Serious: Yes (Other)
  Sender: FDA-Public Use
  Company Number: NVSC2021AT133858

PATIENT
  Age: 72 Year
  Sex: Female

DRUGS (1)
  1. CLAVAMOX 875 MG/125 MG ? FILMTABLETTEN [Suspect]
     Active Substance: AMOXICILLIN\CLAVULANATE POTASSIUM
     Indication: ALLERGY TEST
     Dosage: 1000 UNK
     Route: 065
     Dates: start: 20210217, end: 20210217

REACTIONS (3)
  - Hypertensive crisis [Unknown]
  - Urticaria [Unknown]
  - Type I hypersensitivity [Unknown]

NARRATIVE: CASE EVENT DATE: 20210217
